FAERS Safety Report 5330517-7 (Version None)
Quarter: 2007Q2

REPORT INFORMATION
  Report Type: 
  Country: None (occurrence: None)
  Receive Date: 20070521
  Receipt Date: 20070511
  Transmission Date: 20071010
  Serious: Yes (Other)
  Sender: FDA-Public Use
  Company Number: JP-PFIZER INC-2007039746

PATIENT
  Age: 51 Year
  Sex: Male

DRUGS (6)
  1. IRINOTECAN HCL [Suspect]
     Route: 042
  2. CALCIUM FOLINATE [Suspect]
     Route: 042
  3. FLUOROURACIL [Suspect]
     Route: 042
  4. FLUOROURACIL [Suspect]
     Route: 042
  5. NASEA [Concomitant]
     Indication: PREMEDICATION
  6. DEXAMETHASONE SODIUM PHOSPHATE [Concomitant]
     Indication: PREMEDICATION
     Dates: start: 20070509

REACTIONS (1)
  - LOSS OF CONSCIOUSNESS [None]
